FAERS Safety Report 7052609-7 (Version None)
Quarter: 2010Q4

REPORT INFORMATION
  Report Type: 
  Country: None (occurrence: None)
  Receive Date: 20101019
  Receipt Date: 20101014
  Transmission Date: 20110411
  Serious: Yes (Death)
  Sender: FDA-Public Use
  Company Number: AU-PFIZER INC-2010110363

PATIENT
  Age: 44 Year
  Sex: Male

DRUGS (4)
  1. REVATIO [Suspect]
     Indication: PULMONARY ARTERIAL HYPERTENSION
     Dosage: 20 MG, 3X/DAY
     Route: 048
     Dates: start: 20100419
  2. LASIX [Concomitant]
     Dosage: 500 MG, 2X/DAY
     Route: 048
  3. ALDACTONE [Concomitant]
     Dosage: 50 MG, 2X/DAY
     Route: 048
  4. CLOPIDOGREL [Concomitant]
     Dosage: 75 MG, 1X/DAY
     Route: 048

REACTIONS (1)
  - RIGHT VENTRICULAR FAILURE [None]
